FAERS Safety Report 11801265 (Version 1)
Quarter: 2015Q4

REPORT INFORMATION
  Report Type: Spontaneous
  Country: US (occurrence: US)
  Receive Date: 20151204
  Receipt Date: 20151204
  Transmission Date: 20160305
  Serious: No
  Sender: FDA-Public Use
  Company Number: US-PFIZER INC-2015421936

PATIENT
  Age: 39 Year
  Sex: Female
  Weight: 49.9 kg

DRUGS (7)
  1. PAROXETINE [Concomitant]
     Active Substance: PAROXETINE\PAROXETINE HYDROCHLORIDE
     Indication: ANXIETY
     Dosage: ONE 10MG TABLET EVERY DAY
     Route: 048
     Dates: start: 2013
  2. CHANTIX [Suspect]
     Active Substance: VARENICLINE TARTRATE
     Indication: SMOKING CESSATION THERAPY
     Dosage: A PILL IN THE MORNING AND A PILL IN THE EVENING
     Route: 048
     Dates: start: 2015, end: 2015
  3. BUTALBITAL, ACETAMINOPHEN, AND CAFFEINE [Concomitant]
     Active Substance: ACETAMINOPHEN\BUTALBITAL\CAFFEINE
     Indication: HEAD INJURY
     Dosage: UNK, DAILY
     Dates: start: 2005
  4. OXYCODONE [Concomitant]
     Active Substance: OXYCODONE
     Indication: PAIN
     Dosage: ONE 30MG PILL THREE TIMES EVERY DAY
     Route: 048
     Dates: start: 2005
  5. MEGESTROL [Concomitant]
     Active Substance: MEGESTROL
     Indication: UNDERWEIGHT
     Dosage: UNKNOW DOSAGE; ONE PILL USUALLY EVERY DAY BY MOUTH
     Route: 048
     Dates: start: 2014
  6. VALIUM [Concomitant]
     Active Substance: DIAZEPAM
     Indication: NEUROPATHY PERIPHERAL
     Dosage: ONCE EVERY COUPLE OF DAYS
     Dates: start: 2005
  7. BUTALBITAL, ACETAMINOPHEN, AND CAFFEINE [Concomitant]
     Active Substance: ACETAMINOPHEN\BUTALBITAL\CAFFEINE
     Indication: MIGRAINE

REACTIONS (2)
  - Productive cough [Unknown]
  - Dysgeusia [Unknown]

NARRATIVE: CASE EVENT DATE: 2015
